FAERS Safety Report 18427797 (Version 1)
Quarter: 2020Q4

REPORT INFORMATION
  Report Type: Report from Study
  Country: None (occurrence: SI)
  Receive Date: 20201026
  Receipt Date: 20201026
  Transmission Date: 20210114
  Serious: Yes (Hospitalization, Disabling)
  Sender: FDA-Public Use
  Company Number: SI-ABBVIE-20K-261-3616787-00

PATIENT
  Age: 73 Year
  Sex: Male
  Weight: 76 kg

DRUGS (12)
  1. LACTECON [Concomitant]
     Indication: CONSTIPATION
     Route: 048
     Dates: start: 201709
  2. MADOPAR DISPERSIBLE [Concomitant]
     Indication: PARKINSON^S DISEASE
     Route: 048
     Dates: start: 20190307
  3. DUODOPA [Suspect]
     Active Substance: CARBIDOPA\LEVODOPA
     Indication: PARKINSON^S DISEASE
     Dosage: MD: 9 ML; CD: 2.8 ML/H;ED(ML PER DOSE): 2 ML ED:PER DAY:2ML,DAILY TREATMENT DURATION:16
     Route: 050
     Dates: start: 20170904, end: 20170905
  4. CIPRALEX [Concomitant]
     Active Substance: ESCITALOPRAM OXALATE
     Indication: DEPRESSION
     Route: 048
     Dates: start: 20180302
  5. PANTOPRAZOL [PANTOPRAZOLE] [Concomitant]
     Active Substance: PANTOPRAZOLE
     Indication: GASTRIC PH DECREASED
     Route: 048
     Dates: start: 20171015
  6. KVENTIAX [Concomitant]
     Active Substance: QUETIAPINE FUMARATE
     Indication: DEPRESSION
     Route: 048
     Dates: start: 202001
  7. STALEVO [Concomitant]
     Active Substance: CARBIDOPA\ENTACAPONE\LEVODOPA
     Route: 048
  8. GUTRON [Concomitant]
     Active Substance: MIDODRINE HYDROCHLORIDE
     Indication: ORTHOSTATIC HYPOTENSION
     Route: 048
     Dates: start: 20171117
  9. CLARITINE [Concomitant]
     Active Substance: LORATADINE
     Indication: DERMATITIS ALLERGIC
     Route: 048
     Dates: start: 201912
  10. STALEVO [Concomitant]
     Active Substance: CARBIDOPA\ENTACAPONE\LEVODOPA
     Indication: PARKINSON^S DISEASE
     Route: 048
     Dates: start: 20180315, end: 2020
  11. DUODOPA [Suspect]
     Active Substance: CARBIDOPA\LEVODOPA
  12. YASNAL [Concomitant]
     Indication: COGNITIVE DISORDER
     Route: 048
     Dates: start: 20200406

REACTIONS (1)
  - Hyponatraemia [Recovered/Resolved]

NARRATIVE: CASE EVENT DATE: 20200805
